FAERS Safety Report 13939505 (Version 2)
Quarter: 2018Q1

REPORT INFORMATION
  Report Type: Spontaneous
  Country: US (occurrence: US)
  Receive Date: 20170906
  Receipt Date: 20180105
  Transmission Date: 20180508
  Serious: No
  Sender: FDA-Public Use
  Company Number: US-PFIZER INC-2017380316

PATIENT
  Age: 44 Year
  Sex: Female
  Weight: 77 kg

DRUGS (12)
  1. GENTAMICIN. [Concomitant]
     Active Substance: GENTAMICIN
     Indication: CYSTITIS INTERSTITIAL
     Dosage: 80MG INTO BLADDER DAILY
     Dates: start: 2003
  2. PYRIDIUM [Concomitant]
     Active Substance: PHENAZOPYRIDINE
     Indication: BLADDER SPASM
     Dosage: 200 MG, DAILY
     Route: 048
     Dates: start: 2003
  3. HEPARIN [Concomitant]
     Active Substance: HEPARIN SODIUM
     Indication: CYSTITIS INTERSTITIAL
     Dosage: 100000 UNITS INTO BLADDER DAILY
     Dates: start: 2003
  4. VALTREX [Concomitant]
     Active Substance: VALACYCLOVIR HYDROCHLORIDE
     Indication: GENITAL HERPES
     Dosage: 1 G, DAILY
     Route: 048
     Dates: start: 1996
  5. VALTREX [Concomitant]
     Active Substance: VALACYCLOVIR HYDROCHLORIDE
     Dosage: UNK
     Dates: start: 1997
  6. SODIUM BICARBONATE. [Suspect]
     Active Substance: SODIUM BICARBONATE
     Dosage: 25 ML, UNK
  7. SODIUM BICARBONATE. [Suspect]
     Active Substance: SODIUM BICARBONATE
     Dosage: UNK
     Dates: start: 2003
  8. LIDOCAINE. [Concomitant]
     Active Substance: LIDOCAINE
     Indication: CYSTITIS INTERSTITIAL
     Dosage: 1% 50ML INTO BLADDER DAILY
     Dates: start: 2003
  9. SODIUM BICARBONATE. [Suspect]
     Active Substance: SODIUM BICARBONATE
     Dosage: 10 ML, UNK
  10. SOLU-CORTEF [Concomitant]
     Active Substance: HYDROCORTISONE SODIUM SUCCINATE
     Indication: CYSTITIS INTERSTITIAL
     Dosage: 100MG INTO BLADDER DAILY
     Dates: start: 2003
  11. PROTONIX [Concomitant]
     Active Substance: PANTOPRAZOLE SODIUM
     Indication: GASTROOESOPHAGEAL REFLUX DISEASE
     Dosage: 80 MG, AS NEEDED
     Route: 048
     Dates: start: 1997
  12. SODIUM BICARBONATE. [Suspect]
     Active Substance: SODIUM BICARBONATE
     Indication: CYSTITIS INTERSTITIAL
     Dosage: 8.4% 50ML INTO BLADDER EVERY NIGHT
     Dates: start: 2003, end: 201708

REACTIONS (5)
  - Intentional product use issue [Recovered/Resolved]
  - Product use in unapproved indication [Recovered/Resolved]
  - Disease recurrence [Unknown]
  - Fungal infection [Recovered/Resolved]
  - Vulvovaginal pain [Unknown]

NARRATIVE: CASE EVENT DATE: 2017
